FAERS Safety Report 8707357 (Version 4)
Quarter: 2013Q1

REPORT INFORMATION
  Report Type: Report from Study
  Country: US (occurrence: US)
  Receive Date: 20120803
  Receipt Date: 20130312
  Transmission Date: 20140127
  Serious: Yes (Death)
  Sender: FDA-Public Use
  Company Number: US-GILEAD-2012-0059194

PATIENT
  Age: 54 Year
  Sex: Male

DRUGS (12)
  1. TENOFOVIR DISOPROXIL FUMARATE [Suspect]
     Indication: HEPATITIS B
     Dosage: 300 MG, QD
     Route: 048
     Dates: start: 20060317
  2. METOPROLOL [Concomitant]
     Indication: HYPERTENSION
  3. NIFEDIPINE [Concomitant]
     Indication: HYPERTENSION
     Dosage: UNK
     Dates: start: 20050414
  4. NITROGLYCERINE [Concomitant]
     Indication: PROPHYLAXIS
     Dosage: UNK
     Dates: start: 20110117
  5. MELOXICAM [Concomitant]
     Indication: SCIATICA
     Dosage: UNK
     Dates: start: 20110616
  6. NAPROXEN [Concomitant]
     Indication: SCIATICA
     Dosage: UNK
     Dates: start: 20110616
  7. GABAPENTIN [Concomitant]
     Indication: SCIATICA
     Dosage: UNK
     Dates: start: 20110616
  8. IBUPROFEN [Concomitant]
     Indication: MUSCULOSKELETAL PAIN
     Dosage: UNK
     Dates: start: 20030915
  9. ASPIRIN [Concomitant]
     Indication: PROPHYLAXIS
     Dosage: UNK
     Dates: start: 20080117
  10. SIMVASTATIN [Concomitant]
     Indication: HYPERCHOLESTEROLAEMIA
     Dosage: UNK
     Dates: start: 20080120
  11. OMEPRAZOLE [Concomitant]
     Indication: PROPHYLAXIS
     Dosage: UNK
     Dates: start: 20070919
  12. TEMAZEPAM [Concomitant]
     Indication: INSOMNIA
     Dosage: UNK
     Dates: start: 20090213

REACTIONS (1)
  - Death [Fatal]
